FAERS Safety Report 7041950-X (Version None)
Quarter: 2010Q4

REPORT INFORMATION
  Report Type: 
  Country: None (occurrence: None)
  Receive Date: 20101013
  Receipt Date: 20100614
  Transmission Date: 20110411
  Serious: No
  Sender: FDA-Public Use
  Company Number: US-ASTRAZENECA-2010SE27860

PATIENT
  Age: 55 Year
  Sex: Female

DRUGS (1)
  1. SYMBICORT [Suspect]
     Indication: BRONCHOSPASM
     Route: 055
     Dates: start: 20100101, end: 20100101

REACTIONS (3)
  - CHILLS [None]
  - NAUSEA [None]
  - PYREXIA [None]
